FAERS Safety Report 11830807 (Version 1)
Quarter: 2015Q4

REPORT INFORMATION
  Report Type: Spontaneous
  Country: US (occurrence: US)
  Receive Date: 20151214
  Receipt Date: 20151214
  Transmission Date: 20160305
  Serious: No
  Sender: FDA-Public Use
  Company Number: ZYD-15-AE-151

PATIENT
  Sex: Female

DRUGS (1)
  1. HYDROXYCHLOROQUINE [Suspect]
     Active Substance: HYDROXYCHLOROQUINE
     Indication: PRODUCT USED FOR UNKNOWN INDICATION

REACTIONS (8)
  - Anxiety [Unknown]
  - Memory impairment [Unknown]
  - Back pain [Unknown]
  - Panic attack [Unknown]
  - Rash [Unknown]
  - Pain in extremity [Unknown]
  - Oedema peripheral [Unknown]
  - Feeling abnormal [Unknown]
